FAERS Safety Report 5567310-6 (Version None)
Quarter: 2007Q4

REPORT INFORMATION
  Report Type: 
  Country: None (occurrence: None)
  Receive Date: 20071219
  Receipt Date: 20070108
  Transmission Date: 20080405
  Serious: No
  Sender: FDA-Public Use
  Company Number: US-ABBOTT-07P-163-0355479-00

PATIENT
  Sex: Male
  Weight: 104 kg

DRUGS (7)
  1. DILAUDID [Suspect]
     Indication: LOWER LIMB FRACTURE
     Route: 048
     Dates: start: 20040101
  2. DILAUDID [Suspect]
     Indication: ARTHRALGIA
  3. DILAUDID [Suspect]
     Indication: PAIN
  4. THEOPHYLLINE [Concomitant]
     Indication: DRUG USE FOR UNKNOWN INDICATION
  5. ALPRAZOLAM [Concomitant]
     Indication: DRUG USE FOR UNKNOWN INDICATION
  6. NORTRYPTILLINE [Concomitant]
     Indication: DRUG USE FOR UNKNOWN INDICATION
  7. OXYCODONE HCL [Concomitant]
     Indication: DRUG USE FOR UNKNOWN INDICATION

REACTIONS (1)
  - DRUG INEFFECTIVE [None]
